FAERS Safety Report 18609434 (Version 1)
Quarter: 2020Q4

REPORT INFORMATION
  Report Type: Other
  Country: KR (occurrence: KR)
  Receive Date: 20201214
  Receipt Date: 20201214
  Transmission Date: 20210114
  Serious: Yes (Hospitalization, Other)
  Sender: FDA-Public Use
  Company Number: KR-ROCHE-2727385

PATIENT
  Age: 43 Year
  Sex: Female

DRUGS (20)
  1. NESP [Concomitant]
     Active Substance: DARBEPOETIN ALFA
     Indication: ANAEMIA
     Route: 058
     Dates: start: 20200829
  2. SILMAZINE [Concomitant]
     Dosage: 1%
     Dates: start: 20200812
  3. ALDACTONE [Concomitant]
     Active Substance: SPIRONOLACTONE
     Indication: PLEURAL EFFUSION
     Route: 048
     Dates: start: 20200827
  4. TRASTUZUMAB EMTANSINE [Suspect]
     Active Substance: ADO-TRASTUZUMAB EMTANSINE
     Route: 042
     Dates: start: 20201001, end: 20201001
  5. TACOPEN [Concomitant]
     Indication: PAIN
     Route: 048
     Dates: start: 20200827, end: 20200921
  6. MEGESTROL ES [Concomitant]
     Indication: PROPHYLAXIS
     Dosage: 1 PACK SUSPENSION
     Route: 048
     Dates: start: 20200905
  7. CAROL-F [Concomitant]
     Indication: CANCER PAIN
     Dosage: 400/390 MG
     Route: 048
     Dates: start: 20200521
  8. CEFTRIAXONE. [Concomitant]
     Active Substance: CEFTRIAXONE
     Route: 042
     Dates: start: 20200902, end: 20201014
  9. IRCODON [Concomitant]
     Active Substance: OXYCODONE HYDROCHLORIDE
     Indication: PAIN
     Route: 048
     Dates: start: 20200918, end: 20200930
  10. DICAMAX [Concomitant]
     Indication: METASTASES TO BONE
     Dosage: 1250/1000 IU
     Route: 048
     Dates: start: 20190517
  11. STILLEN [Concomitant]
     Indication: GASTRITIS
     Route: 048
     Dates: start: 20200424
  12. XGEVA [Concomitant]
     Active Substance: DENOSUMAB
     Indication: METASTASES TO BONE
     Route: 058
     Dates: start: 20190517
  13. ATROVENT UDV [Concomitant]
     Active Substance: IPRATROPIUM BROMIDE
     Indication: DYSPNOEA
     Dates: start: 20200901, end: 20200914
  14. TRASTUZUMAB EMTANSINE [Suspect]
     Active Substance: ADO-TRASTUZUMAB EMTANSINE
     Indication: BREAST CANCER
     Route: 042
     Dates: start: 20200814
  15. TRASTUZUMAB EMTANSINE [Suspect]
     Active Substance: ADO-TRASTUZUMAB EMTANSINE
     Route: 042
     Dates: start: 20200910
  16. FEROBA YOU [Concomitant]
     Indication: ANAEMIA
     Route: 048
     Dates: start: 20200727
  17. GABAPENTIN. [Concomitant]
     Active Substance: GABAPENTIN
     Route: 048
     Dates: start: 20190517
  18. CODAEWON FORTE [Concomitant]
     Indication: COUGH
     Route: 048
     Dates: start: 20200807
  19. OXYCONTIN CONTROLLED RELEASE [Concomitant]
     Indication: PAIN
     Route: 048
     Dates: start: 20200921
  20. TARGIN [Concomitant]
     Active Substance: NALOXONE HYDROCHLORIDE\OXYCODONE HYDROCHLORIDE
     Indication: PAIN
     Dosage: 10/5 MG
     Route: 048
     Dates: start: 20200831, end: 20200914

REACTIONS (2)
  - Pulmonary oedema [Recovering/Resolving]
  - Tumour haemorrhage [Recovered/Resolved]

NARRATIVE: CASE EVENT DATE: 20201010
